FAERS Safety Report 9466130 (Version 1)
Quarter: 2013Q3

REPORT INFORMATION
  Report Type: Spontaneous
  Country: US (occurrence: None)
  Receive Date: 20130816
  Receipt Date: 20130816
  Transmission Date: 20140515
  Serious: Yes (Life-Threatening)
  Sender: FDA-Public Use
  Company Number: None

PATIENT
  Sex: Female

DRUGS (3)
  1. ORENCIA [Suspect]
     Indication: RHEUMATOID ARTHRITIS
     Dosage: ONE  PFS  QWK  SQ
  2. ALBUTERAL INH [Concomitant]
  3. TYLENOL WITH COD. #3 [Concomitant]

REACTIONS (2)
  - Hypersensitivity [None]
  - Respiratory arrest [None]
